FAERS Safety Report 8842822 (Version 1)
Quarter: 2012Q4

REPORT INFORMATION
  Report Type: 
  Country: CN (occurrence: CN)
  Receive Date: 20121016
  Receipt Date: 20121016
  Transmission Date: 20130627
  Serious: Yes (Other)
  Sender: FDA-Public Use
  Company Number: CN-BAYER-2012-106546

PATIENT
  Age: 29 Year
  Sex: Female

DRUGS (2)
  1. MOXIFLOXACIN ORAL [Suspect]
     Indication: UTERINE CERVICAL EROSION
     Dosage: 1 DF, QD
     Route: 048
     Dates: start: 20110711, end: 20110713
  2. BAOGONGZHIXUE GRANULES [Concomitant]
     Dosage: 1 pack twice daily, infusion

REACTIONS (3)
  - Nausea [Recovered/Resolved]
  - Tachycardia [Recovered/Resolved]
  - Asphyxia [Recovered/Resolved]
